FAERS Safety Report 8606335 (Version 5)
Quarter: 2013Q2

REPORT INFORMATION
  Report Type: Spontaneous
  Country: US (occurrence: US)
  Receive Date: 20120608
  Receipt Date: 20130503
  Transmission Date: 20140414
  Serious: Yes (Other)
  Sender: FDA-Public Use
  Company Number: US-ASTRAZENECA-2011SE29653

PATIENT
  Age: 69 Year
  Sex: Female

DRUGS (16)
  1. SYMBICORT PMDI [Suspect]
     Dosage: 2 DOSES, UNKNOWN
     Route: 055
  2. SYMBICORT PMDI [Suspect]
     Dosage: 3 DOSE, UNKNOWN
     Route: 055
  3. PULMICORT [Suspect]
     Route: 055
  4. PULMICORT [Suspect]
     Route: 055
  5. NEXIUM [Suspect]
     Route: 048
  6. INDERAL [Suspect]
     Route: 065
  7. PRILOSEC [Suspect]
     Route: 048
  8. XYLOCAINE/LIDOCAINE [Suspect]
     Route: 065
  9. ASPIRIN [Suspect]
     Route: 065
  10. MORPHINE [Suspect]
     Route: 065
  11. VENTOLIN [Suspect]
     Route: 055
     Dates: start: 20110402
  12. FLONASE [Suspect]
     Route: 045
     Dates: start: 20110402
  13. ADVAIR [Concomitant]
  14. RADIOACTIVE IODINE PILLS [Concomitant]
  15. MEDROL [Concomitant]
  16. CRESTOR [Concomitant]
     Route: 048

REACTIONS (25)
  - Loss of consciousness [Unknown]
  - Fall [Unknown]
  - Fatigue [Unknown]
  - Asthenia [Not Recovered/Not Resolved]
  - Feeling abnormal [Unknown]
  - Malaise [Unknown]
  - Bronchiectasis [Unknown]
  - Mental status changes [Unknown]
  - Somnolence [Unknown]
  - Abdominal pain [Unknown]
  - Diarrhoea [Unknown]
  - Asthma [Unknown]
  - Dyspnoea [Unknown]
  - Vomiting [Unknown]
  - Blood calcium increased [Recovered/Resolved]
  - Gastrooesophageal reflux disease [Unknown]
  - Chest discomfort [Unknown]
  - Arrhythmia [Unknown]
  - Hypotension [Unknown]
  - Cough [Recovered/Resolved]
  - Hypersensitivity [Unknown]
  - Adverse reaction [Unknown]
  - Drug dose omission [Unknown]
  - Off label use [Unknown]
  - Incorrect dose administered [Unknown]
